FAERS Safety Report 6944875-0 (Version None)
Quarter: 2010Q3

REPORT INFORMATION
  Report Type: 
  Country: None (occurrence: None)
  Receive Date: 20100827
  Receipt Date: 20100817
  Transmission Date: 20110219
  Serious: Yes (Other)
  Sender: FDA-Public Use
  Company Number: JP-BAYER-201013703BYL

PATIENT
  Age: 65 Year
  Sex: Male
  Weight: 58 kg

DRUGS (10)
  1. NEXAVAR [Suspect]
     Indication: HEPATIC NEOPLASM MALIGNANT
     Dosage: TOTAL DAILY DOSE: 400 MG  UNIT DOSE: 200 MG
     Route: 048
     Dates: start: 20100715, end: 20100720
  2. NEXAVAR [Suspect]
     Dosage: UNIT DOSE: 200 MG
     Route: 048
     Dates: start: 20100727
  3. JUVELA N [Concomitant]
     Indication: NEUROPATHY PERIPHERAL
     Dosage: UNIT DOSE: 200 MG
     Route: 048
     Dates: start: 20030101
  4. METHYCOBAL [Concomitant]
     Indication: NEUROPATHY PERIPHERAL
     Dosage: UNIT DOSE: 0.5 MG
     Route: 048
     Dates: start: 20030101
  5. NORVASC [Concomitant]
     Indication: HYPERTENSION
     Dosage: UNIT DOSE: 5 MG
     Route: 048
     Dates: start: 20030101
  6. ZYLORIC [Concomitant]
     Indication: GOUT
     Dosage: UNIT DOSE: 100 MG
     Route: 048
     Dates: start: 20030101
  7. GLYBURIDE [Concomitant]
     Indication: DIABETES MELLITUS
     Dosage: UNIT DOSE: 2.5 MG
     Route: 048
     Dates: start: 20030101
  8. GASTER [Concomitant]
     Indication: GASTRIC ULCER
     Dosage: UNIT DOSE: 20 MG
     Route: 048
     Dates: start: 20030101
  9. LOXONIN [Concomitant]
     Indication: CANCER PAIN
     Dosage: UNIT DOSE: 60 MG
     Route: 048
     Dates: start: 20100707
  10. MUCOSTA [Concomitant]
     Indication: GASTRIC ULCER
     Dosage: UNIT DOSE: 100 MG
     Route: 048
     Dates: start: 20100707

REACTIONS (1)
  - HEPATIC FUNCTION ABNORMAL [None]
